FAERS Safety Report 4865284-4 (Version None)
Quarter: 2005Q4

REPORT INFORMATION
  Report Type: 
  Country: None (occurrence: None)
  Receive Date: 20051223
  Receipt Date: 20051211
  Transmission Date: 20060501
  Serious: Yes (Hospitalization)
  Sender: FDA-Public Use
  Company Number: US-SANOFI-SYNTHELABO-A03200504187

PATIENT
  Age: 67 Year
  Sex: Male

DRUGS (1)
  1. UROXATRAL [Suspect]
     Indication: BENIGN PROSTATIC HYPERPLASIA
     Route: 048
     Dates: start: 20050101, end: 20051211

REACTIONS (9)
  - EPISTAXIS [None]
  - FAECES DISCOLOURED [None]
  - FULL BLOOD COUNT DECREASED [None]
  - HYPOTENSION [None]
  - MIDDLE INSOMNIA [None]
  - NASAL CONGESTION [None]
  - SPEECH DISORDER [None]
  - STAPHYLOCOCCAL INFECTION [None]
  - THERAPY NON-RESPONDER [None]
